FAERS Safety Report 8815891 (Version 1)
Quarter: 2012Q4

REPORT INFORMATION
  Report Type: Report from Study
  Country: FR (occurrence: FR)
  Receive Date: 20120928
  Receipt Date: 20120928
  Transmission Date: 20130627
  Serious: Yes (Hospitalization)
  Sender: FDA-Public Use
  Company Number: FR-ROCHE-CID000000002157554

PATIENT
  Age: 76 Year
  Sex: Male
  Weight: 102 kg

DRUGS (17)
  1. ROACTEMRA [Suspect]
     Indication: RHEUMATOID ARTHRITIS
     Route: 042
     Dates: start: 20100629, end: 20101220
  2. CORTANCYL [Concomitant]
     Indication: RHEUMATOID ARTHRITIS
     Route: 065
  3. ABATACEPT [Concomitant]
  4. CACIT D3 [Concomitant]
     Route: 065
  5. BONVIVA [Concomitant]
     Route: 065
  6. LYRICA [Concomitant]
     Route: 065
  7. DIFFU K [Concomitant]
     Route: 065
  8. NOVONORM [Concomitant]
     Route: 065
  9. KREDEX [Concomitant]
     Route: 065
  10. GABAPENTIN [Concomitant]
     Route: 065
  11. RAMIPRIL [Concomitant]
     Route: 065
  12. DIGOXINE [Concomitant]
     Route: 065
  13. FUROSEMIDE [Concomitant]
     Route: 065
  14. SPIRIVA [Concomitant]
     Route: 065
  15. SYMBICORT [Concomitant]
     Route: 065
  16. MIOREL [Concomitant]
     Route: 065
  17. KLIPAL [Concomitant]
     Route: 065

REACTIONS (6)
  - Cardiomyopathy [Recovered/Resolved]
  - Cardiac murmur [Not Recovered/Not Resolved]
  - Thrombocytopenia [Recovered/Resolved]
  - Urinary tract infection [Recovered/Resolved]
  - Furuncle [Recovered/Resolved]
  - Polyneuropathy [Not Recovered/Not Resolved]
